FAERS Safety Report 5457558-3 (Version None)
Quarter: 2007Q3

REPORT INFORMATION
  Report Type: 
  Country: None (occurrence: None)
  Receive Date: 20070918
  Receipt Date: 20070911
  Transmission Date: 20080115
  Serious: Yes (Death, Hospitalization)
  Sender: FDA-Public Use
  Company Number: US-ROXANE LABORATORIES, INC-2007-BP-20811RO

PATIENT
  Age: 32 Year
  Sex: Male

DRUGS (5)
  1. MERCAPTOPURINE [Suspect]
     Indication: CROHN'S DISEASE
     Dates: start: 20050701
  2. INFLIXIMAB [Suspect]
     Indication: CROHN'S DISEASE
     Route: 042
     Dates: start: 20050701
  3. CORTICOSTEROIDS [Suspect]
     Indication: ABDOMINAL PAIN
  4. ABELCET [Concomitant]
     Indication: SYSTEMIC ANTIFUNGAL TREATMENT
     Route: 042
  5. BROAD-SPECTRUM ANTIBIOTICS [Concomitant]
     Indication: INFECTION

REACTIONS (8)
  - ABDOMINAL SEPSIS [None]
  - GALLBLADDER NECROSIS [None]
  - GASTRIC PERFORATION [None]
  - GASTROINTESTINAL HAEMORRHAGE [None]
  - LIVER ABSCESS [None]
  - MUCORMYCOSIS [None]
  - MULTI-ORGAN FAILURE [None]
  - PNEUMOPERITONEUM [None]
